FAERS Safety Report 9628346 (Version 1)
Quarter: 2013Q4

REPORT INFORMATION
  Report Type: Spontaneous
  Country: GB (occurrence: GB)
  Receive Date: 20131017
  Receipt Date: 20131017
  Transmission Date: 20140711
  Serious: Yes (Hospitalization, Other)
  Sender: FDA-Public Use
  Company Number: GB-AMGEN-GBRSP2013072803

PATIENT
  Age: 35 Year
  Sex: Female

DRUGS (2)
  1. ENBREL [Suspect]
     Indication: RHEUMATOID ARTHRITIS
     Dosage: 50 MG, UNK
     Route: 058
     Dates: start: 201106, end: 20130911
  2. MELOXICAM [Concomitant]
     Indication: RHEUMATOID ARTHRITIS
     Dosage: 15 MG, 1X/DAY AT NIGHT
     Route: 048

REACTIONS (7)
  - Urticaria [Recovered/Resolved]
  - Swelling face [Recovered/Resolved]
  - Throat tightness [Recovered/Resolved]
  - Dyspnoea [Recovered/Resolved]
  - Pharyngeal oedema [Recovered/Resolved]
  - Local swelling [Recovered/Resolved]
  - Rash [Recovered/Resolved]
